FAERS Safety Report 18929115 (Version 17)
Quarter: 2025Q1

REPORT INFORMATION
  Report Type: Spontaneous
  Country: CA (occurrence: CA)
  Receive Date: 20210223
  Receipt Date: 20250320
  Transmission Date: 20250408
  Serious: Yes (Other)
  Sender: PFIZER
  Company Number: CA-PFIZER INC-2020060900

PATIENT
  Age: 61 Year
  Sex: Male
  Weight: 80 kg

DRUGS (23)
  1. INLYTA [Suspect]
     Active Substance: AXITINIB
     Indication: Renal cell carcinoma
     Dosage: 5 MG, 2X/DAY
     Route: 048
     Dates: start: 20200218, end: 2020
  2. INLYTA [Suspect]
     Active Substance: AXITINIB
     Dosage: 5 MG, 2X/DAY
     Route: 048
     Dates: start: 20200824, end: 2020
  3. INLYTA [Suspect]
     Active Substance: AXITINIB
     Dosage: 5 MG, 2X/DAY (TAKE ON EMPTY STOMACH OR AFTER A FAT FREE MEAL)
     Route: 048
     Dates: start: 20200914, end: 2020
  4. INLYTA [Suspect]
     Active Substance: AXITINIB
     Dosage: 5 MG, 2X/DAY (TAKE ON EMPTY STOMACH OR AFTER A FAT FREE MEAL)
     Route: 048
     Dates: start: 20201026, end: 2020
  5. INLYTA [Suspect]
     Active Substance: AXITINIB
     Dosage: 3 MG, 2X/DAY
     Route: 048
     Dates: start: 20210209
  6. INLYTA [Suspect]
     Active Substance: AXITINIB
     Dosage: 5 MG, 2X/DAY (TAKE ON EMPTY STOMACH OR AFTER A FAT FREE MEAL) 21 DAYS (NO REPEATS)
     Route: 048
     Dates: start: 20210222
  7. INLYTA [Suspect]
     Active Substance: AXITINIB
     Dosage: (TAKE ON EMPTY STOMACH OR AFTER A FAT-FREE MEAL)
     Route: 048
     Dates: start: 20210412
  8. INLYTA [Suspect]
     Active Substance: AXITINIB
     Dosage: 5 MG, 2X/DAY
     Route: 048
     Dates: start: 20210510
  9. INLYTA [Suspect]
     Active Substance: AXITINIB
     Dosage: 5 MG, 2X/DAY
     Route: 048
     Dates: start: 20210621
  10. INLYTA [Suspect]
     Active Substance: AXITINIB
     Dosage: 2 MG, 2X/DAY
     Route: 048
     Dates: start: 20211004
  11. INLYTA [Suspect]
     Active Substance: AXITINIB
     Dosage: 2 MG, 2X/DAY
     Route: 048
     Dates: start: 20211025
  12. INLYTA [Suspect]
     Active Substance: AXITINIB
     Dosage: TAKE ON EMPTY STOMACH OR AFTER A FAT FREE MEAL
     Route: 048
     Dates: start: 20211206
  13. INLYTA [Suspect]
     Active Substance: AXITINIB
     Dosage: TAKE ON EMPTY STOMACH OR AFTER A FAT FREE MEAL
     Route: 048
     Dates: start: 20220124
  14. INLYTA [Suspect]
     Active Substance: AXITINIB
     Dosage: 2 MG, 2X/DAY
     Route: 048
     Dates: start: 20231114
  15. INLYTA [Suspect]
     Active Substance: AXITINIB
     Dosage: 2 MG, 2X/DAY
     Route: 048
     Dates: start: 20240521
  16. INLYTA [Suspect]
     Active Substance: AXITINIB
     Dosage: 1 MG, 2X/DAY (2 TABLETS (2MG TOTAL) BY MOUTH 2 TIMES A DAY)
     Route: 048
     Dates: start: 20250312
  17. CRESTOR [Concomitant]
     Active Substance: ROSUVASTATIN CALCIUM
  18. ENSURE [Concomitant]
     Active Substance: AMINO ACIDS\DEXTROSE\ELECTROLYTES NOS\SOYBEAN OIL\VITAMINS
  19. KEYTRUDA [Concomitant]
     Active Substance: PEMBROLIZUMAB
  20. LEVOTHYROXINE [Concomitant]
     Active Substance: LEVOTHYROXINE
     Dosage: 50 UG, DAILY
  21. TYLENOL [Concomitant]
     Active Substance: ACETAMINOPHEN
  22. VITAMIN B12 [Concomitant]
     Active Substance: CYANOCOBALAMIN
  23. PEMBROLIZUMAB [Concomitant]
     Active Substance: PEMBROLIZUMAB
     Dates: end: 202312

REACTIONS (35)
  - Colitis ulcerative [Unknown]
  - Pain [Unknown]
  - Fatigue [Unknown]
  - Nausea [Unknown]
  - Depression [Unknown]
  - Anxiety [Unknown]
  - Somnolence [Unknown]
  - Decreased appetite [Unknown]
  - Malaise [Unknown]
  - Dyspnoea [Unknown]
  - Haemoglobin decreased [Unknown]
  - Platelet count increased [Unknown]
  - Blood thyroid stimulating hormone decreased [Unknown]
  - Proteinuria [Recovered/Resolved]
  - Cortisol increased [Unknown]
  - Blood thyroid stimulating hormone increased [Unknown]
  - Diarrhoea [Not Recovered/Not Resolved]
  - Faeces discoloured [Unknown]
  - Thyroid disorder [Unknown]
  - Renal disorder [Unknown]
  - Inflammation [Unknown]
  - Blood pressure increased [Recovered/Resolved]
  - Rash [Unknown]
  - Mucosal inflammation [Not Recovered/Not Resolved]
  - Platelet count decreased [Unknown]
  - Haemoglobin increased [Not Recovered/Not Resolved]
  - Blood creatinine increased [Unknown]
  - Neutrophil count decreased [Unknown]
  - Blood creatinine decreased [Unknown]
  - Protein urine present [Unknown]
  - Weight increased [Unknown]
  - Body surface area increased [Unknown]
  - Body surface area decreased [Unknown]
  - Weight decreased [Unknown]
  - Paraesthesia [Unknown]

NARRATIVE: CASE EVENT DATE: 20200101
